FAERS Safety Report 10687613 (Version 1)
Quarter: 2014Q4

REPORT INFORMATION
  Report Type: Report from Study
  Country: US (occurrence: None)
  Receive Date: 20141230
  Receipt Date: 20141230
  Transmission Date: 20150529
  Serious: Yes (Other)
  Sender: FDA-Public Use
  Company Number: AEGR001053

PATIENT
  Age: 75 Year
  Sex: Female
  Weight: 55.8 kg

DRUGS (15)
  1. PLAVIX (CLOPIDOGREL BISULFATE) [Concomitant]
  2. JUXTAPID [Suspect]
     Active Substance: LOMITAPIDE MESYLATE
     Indication: PRODUCT USED FOR UNKNOWN INDICATION
     Route: 048
     Dates: start: 20130312
  3. ZETIA [Concomitant]
     Active Substance: EZETIMIBE
  4. LISINOPRIL. [Concomitant]
     Active Substance: LISINOPRIL
  5. ALPRAZOLAM (ALPRAZOLM) [Concomitant]
  6. METOPROLOL (METOPROLOL TARTARTE) [Concomitant]
  7. TRAMADOL (TRAMADOL HYDROCHLORIDE) [Concomitant]
     Active Substance: TRAMADOL HYDROCHLORIDE
  8. ASPIRIN (ACETYLSALICYLIC ACID) [Concomitant]
     Active Substance: ASPIRIN
  9. VITAMIN E (TOCOPHERYL ACETATE) [Concomitant]
  10. WELCHOL (COLESEVELAM HYDROCHLORIDE) (625 MILLIGRAM, TABLET) (COLESEVELAM HYDROCHLORIDE) [Concomitant]
     Active Substance: COLESEVELAM HYDROCHLORIDE
  11. NIACIN (NICOTINIC ACID) [Concomitant]
  12. CRESTOR [Concomitant]
     Active Substance: ROSUVASTATIN CALCIUM
  13. SYNTHROID [Concomitant]
     Active Substance: LEVOTHYROXINE SODIUM
  14. OMEGA 3 6 9 (OMEGA 9 FATTY ACIDS, OMEGA-3 FATTY ACIDS, OMEGA-6 FATTY ACIDS) [Concomitant]
  15. OCUVITE LUTEIN (ASCORBIC ACID, CUPRIC OXIDE, TOCOPHERYL ACETATE, XANTOFYL, ZINC OXIDE) [Concomitant]

REACTIONS (2)
  - Carotid artery occlusion [None]
  - Product used for unknown indication [None]

NARRATIVE: CASE EVENT DATE: 20130312
